FAERS Safety Report 7530691-8 (Version None)
Quarter: 2011Q2

REPORT INFORMATION
  Report Type: 
  Country: None (occurrence: None)
  Receive Date: 20110607
  Receipt Date: 20110523
  Transmission Date: 20111010
  Serious: Yes (Other)
  Sender: FDA-Public Use
  Company Number: ES-WATSON-2011-07667

PATIENT
  Age: 64 Year
  Sex: Female

DRUGS (2)
  1. FLUOROURACIL [Suspect]
     Dosage: 2400 MG/M2,CONTIUOUS INFUSION OVER 48 HRS
     Route: 042
  2. FLUOROURACIL [Suspect]
     Indication: CHEMOTHERAPY
     Dosage: 400 MG IV BOLUS

REACTIONS (3)
  - ANGINA PECTORIS [None]
  - SINUS TACHYCARDIA [None]
  - CUTANEOUS LUPUS ERYTHEMATOSUS [None]
